FAERS Safety Report 10907781 (Version 2)
Quarter: 2015Q1

REPORT INFORMATION
  Report Type: Spontaneous
  Country: JP (occurrence: JP)
  Receive Date: 20150312
  Receipt Date: 20150327
  Transmission Date: 20150721
  Serious: Yes (Other)
  Sender: FDA-Public Use
  Company Number: JP-ASTELLAS-2015JP004525

PATIENT
  Sex: Female

DRUGS (1)
  1. PROGRAF [Suspect]
     Active Substance: TACROLIMUS\TACROLIMUS ANHYDROUS
     Indication: RHEUMATOID ARTHRITIS
     Dosage: UNK, UNK, UNKNOWN FREQ.
     Route: 048

REACTIONS (2)
  - Fall [Unknown]
  - Femoral neck fracture [Unknown]
